FAERS Safety Report 9056779 (Version 1)
Quarter: 2013Q1

REPORT INFORMATION
  Report Type: Spontaneous
  Country: US (occurrence: US)
  Receive Date: 20130201
  Receipt Date: 20130201
  Transmission Date: 20140127
  Serious: Yes (Disabling, Other)
  Sender: FDA-Public Use
  Company Number: US-MYLANLABS-2013S1000626

PATIENT
  Sex: Female

DRUGS (3)
  1. ALBUTEROL SULFATE [Suspect]
     Indication: BRONCHITIS
     Dosage: TID AFTER COUGHING AND BRONCHIAL INFECTION
     Route: 055
     Dates: start: 2005
  2. ALBUTEROL SULFATE [Suspect]
     Indication: ASTHMA
     Dosage: TID AFTER COUGHING AND BRONCHIAL INFECTION
     Route: 055
     Dates: start: 2005
  3. ADVAIR [Concomitant]
     Indication: BRONCHITIS
     Dosage: 250/50

REACTIONS (4)
  - Bronchospasm paradoxical [Not Recovered/Not Resolved]
  - Physical disability [Not Recovered/Not Resolved]
  - Dyspnoea [Not Recovered/Not Resolved]
  - Abasia [None]
